FAERS Safety Report 7971531-2 (Version None)
Quarter: 2011Q4

REPORT INFORMATION
  Report Type: 
  Country: None (occurrence: None)
  Receive Date: 20111212
  Receipt Date: 20111129
  Transmission Date: 20120403
  Serious: Yes (Other)
  Sender: FDA-Public Use
  Company Number: CA-ELI_LILLY_AND_COMPANY-CA201111008607

PATIENT
  Sex: Male

DRUGS (7)
  1. ZYPREXA [Suspect]
     Dosage: 20 MG, EACH EVENING
  2. ZYPREXA [Suspect]
     Indication: SCHIZOPHRENIA, PARANOID TYPE
     Dosage: 5 MG, EACH EVENING
     Dates: start: 19980914
  3. DOXEPIN [Concomitant]
  4. DIVALPROEX SODIUM [Concomitant]
  5. CLONAZEPAM [Concomitant]
  6. IMIPRAMINE [Concomitant]
  7. ZYPREXA [Suspect]
     Dosage: 10 MG, EACH EVENING

REACTIONS (7)
  - CHEST PAIN [None]
  - HYPERTENSION [None]
  - HYPERLIPIDAEMIA [None]
  - RETINOPATHY [None]
  - DIABETES MELLITUS [None]
  - NEUROPATHY PERIPHERAL [None]
  - WEIGHT INCREASED [None]
